FAERS Safety Report 6547269-5 (Version None)
Quarter: 2010Q1

REPORT INFORMATION
  Report Type: 
  Country: None (occurrence: None)
  Receive Date: 20100122
  Receipt Date: 20091109
  Transmission Date: 20100710
  Serious: No
  Sender: FDA-Public Use
  Company Number: US-BAUSCH-2009BL006013

PATIENT
  Age: 58 Year
  Sex: Female
  Weight: 117 kg

DRUGS (7)
  1. ZYLET [Suspect]
     Indication: EYELID MARGIN CRUSTING
     Route: 047
     Dates: start: 20091017, end: 20091021
  2. OXYGEN [Concomitant]
     Indication: CHRONIC OBSTRUCTIVE PULMONARY DISEASE
     Route: 045
  3. ADVAIR [Concomitant]
     Indication: CHRONIC OBSTRUCTIVE PULMONARY DISEASE
     Route: 049
  4. GLYBURIDE [Concomitant]
     Indication: DIABETES MELLITUS
     Route: 048
     Dates: start: 20030101
  5. METOPROLOL [Concomitant]
     Indication: HYPERTENSION
     Route: 048
  6. OXYBUTYNIN [Concomitant]
     Indication: INCONTINENCE
  7. CLONAZEPAM [Concomitant]
     Indication: ANXIETY
     Route: 048
     Dates: start: 19750101

REACTIONS (3)
  - DIZZINESS [None]
  - DYSPNOEA [None]
  - OROPHARYNGEAL PAIN [None]
